FAERS Safety Report 5811784-X (Version None)
Quarter: 2008Q3

REPORT INFORMATION
  Report Type: 
  Country: None (occurrence: None)
  Receive Date: 20080715
  Receipt Date: 20080715
  Transmission Date: 20090109
  Serious: Yes (Life-Threatening, Hospitalization)
  Sender: FDA-Public Use
  Company Number: None

PATIENT
  Sex: Female
  Weight: 54.2 kg

DRUGS (1)
  1. ALINIA [Suspect]
     Indication: OVERGROWTH BACTERIAL
     Dosage: 500MG BID PO
     Route: 048
     Dates: start: 20080711, end: 20080711

REACTIONS (3)
  - DYSPNOEA [None]
  - FEELING ABNORMAL [None]
  - URTICARIA [None]
